FAERS Safety Report 11471001 (Version 2)
Quarter: 2015Q3

REPORT INFORMATION
  Report Type: Spontaneous
  Country: US (occurrence: US)
  Receive Date: 20150903
  Receipt Date: 20150903
  Transmission Date: 20151125
  Serious: No
  Sender: FDA-Public Use
  Company Number: US-ELI_LILLY_AND_COMPANY-US201109004139

PATIENT
  Age: 57 Year
  Sex: Female

DRUGS (1)
  1. CYMBALTA [Suspect]
     Active Substance: DULOXETINE HYDROCHLORIDE
     Indication: ANXIETY
     Dosage: 30 MG, QD
     Dates: start: 20110908, end: 20110910

REACTIONS (8)
  - Hot flush [Not Recovered/Not Resolved]
  - Tremor [Unknown]
  - Disturbance in attention [Unknown]
  - Dry mouth [Unknown]
  - Decreased appetite [Unknown]
  - Anxiety [Not Recovered/Not Resolved]
  - Tachyphrenia [Unknown]
  - Chills [Unknown]

NARRATIVE: CASE EVENT DATE: 20110911
